FAERS Safety Report 16634037 (Version 1)
Quarter: 2019Q3

REPORT INFORMATION
  Report Type: Spontaneous
  Country: US (occurrence: US)
  Receive Date: 20190613
  Receipt Date: 20190613
  Transmission Date: 20191004
  Serious: No
  Sender: FDA-Public Use
  Company Number: None

PATIENT
  Age: 78 Year
  Sex: Female

DRUGS (1)
  1. REPATHA [Suspect]
     Active Substance: EVOLOCUMAB
     Dates: start: 20190613

REACTIONS (7)
  - Injection site reaction [None]
  - Injection site swelling [None]
  - Injection site pain [None]
  - Injection site erythema [None]
  - Incorrect dose administered [None]
  - Needle issue [None]
  - Injection site induration [None]

NARRATIVE: CASE EVENT DATE: 20190613
